FAERS Safety Report 4269520-7 (Version None)
Quarter: 2004Q1

REPORT INFORMATION
  Report Type: 
  Country: None (occurrence: None)
  Receive Date: 20040112
  Receipt Date: 20040112
  Transmission Date: 20041129
  Serious: Yes (Hospitalization)
  Sender: FDA-Public Use
  Company Number: None

PATIENT
  Age: 60 Year
  Sex: Male

DRUGS (6)
  1. NPH ILETIN II [Suspect]
     Indication: DIABETES MELLITUS INSULIN-DEPENDENT
     Dosage: 18 U QAM/7 Q PM
     Dates: start: 19951106
  2. LISINOPRIL [Concomitant]
  3. MECLIZINE [Concomitant]
  4. SERTRALINE HCL [Concomitant]
  5. ASPIRIN [Concomitant]
  6. TERAZOSIN HCL [Concomitant]

REACTIONS (2)
  - COMA [None]
  - CONVULSION [None]
